FAERS Safety Report 6676786-2 (Version None)
Quarter: 2010Q2

REPORT INFORMATION
  Report Type: 
  Country: None (occurrence: None)
  Receive Date: 20100412
  Receipt Date: 20100401
  Transmission Date: 20101027
  Serious: Yes (Hospitalization)
  Sender: FDA-Public Use
  Company Number: RU-ROCHE-694732

PATIENT
  Sex: Female

DRUGS (2)
  1. TOCILIZUMAB [Suspect]
     Indication: RHEUMATOID ARTHRITIS
     Dosage: LAST DOSE PRIOR TO SAE: 19 MAR 2010, FORM: CONCENTRATE FOR INFUSION
     Route: 042
     Dates: start: 20100118, end: 20100327
  2. METHOTREXATE [Suspect]
     Indication: RHEUMATOID ARTHRITIS
     Dosage: LAST DOSE PRIOR TO SAE: 22 MARCH 2010
     Route: 048
     Dates: start: 20100118, end: 20100327

REACTIONS (3)
  - PLEURISY [None]
  - PNEUMONIA [None]
  - RESPIRATORY FAILURE [None]
